FAERS Safety Report 7304542-0 (Version None)
Quarter: 2011Q1

REPORT INFORMATION
  Report Type: 
  Country: None (occurrence: None)
  Receive Date: 20110221
  Receipt Date: 20101001
  Transmission Date: 20110831
  Serious: Yes (Other)
  Sender: FDA-Public Use
  Company Number: PHHY2010MX65143

PATIENT
  Age: 71 Year
  Sex: Female

DRUGS (2)
  1. AFINITOR [Suspect]
     Dosage: 05 MG /DAY
     Route: 048
     Dates: start: 20090501
  2. AFINITOR [Suspect]
     Indication: RENAL CELL CARCINOMA
     Dosage: 10 MG, UNK
     Route: 048
     Dates: start: 20090101, end: 20090301

REACTIONS (10)
  - MUCOSAL INFLAMMATION [None]
  - DECREASED APPETITE [None]
  - GENERAL PHYSICAL HEALTH DETERIORATION [None]
  - PYREXIA [None]
  - ASTHENIA [None]
  - ABDOMINAL PAIN [None]
  - LUNG NEOPLASM [None]
  - DIARRHOEA [None]
  - FATIGUE [None]
  - ALOPECIA [None]
